FAERS Safety Report 21514094 (Version 1)
Quarter: 2022Q4

REPORT INFORMATION
  Report Type: Spontaneous
  Country: US (occurrence: US)
  Receive Date: 20221027
  Receipt Date: 20221027
  Transmission Date: 20230112
  Serious: No
  Sender: FDA-Public Use
  Company Number: US-SERVIER-S22010644

PATIENT

DRUGS (2)
  1. TIBSOVO [Suspect]
     Active Substance: IVOSIDENIB
     Indication: Anaplastic astrocytoma
     Dosage: UNK
     Route: 065
     Dates: start: 202101
  2. TIBSOVO [Suspect]
     Active Substance: IVOSIDENIB
     Indication: Off label use

REACTIONS (2)
  - Off label use [Recovered/Resolved]
  - Disease progression [Recovered/Resolved]

NARRATIVE: CASE EVENT DATE: 20210101
